FAERS Safety Report 20752420 (Version 1)
Quarter: 2022Q2

REPORT INFORMATION
  Report Type: Spontaneous
  Country: US (occurrence: US)
  Receive Date: 20220426
  Receipt Date: 20220426
  Transmission Date: 20220720
  Serious: Yes (Death, Hospitalization, Other)
  Sender: FDA-Public Use
  Company Number: US-GILEAD-2022-0579146

PATIENT
  Age: 70 Year
  Sex: Male

DRUGS (6)
  1. YESCARTA [Suspect]
     Active Substance: AXICABTAGENE CILOLEUCEL
     Indication: Diffuse large B-cell lymphoma
     Dosage: UNK
     Route: 042
     Dates: start: 20210908, end: 20210908
  2. CYCLOPHOSPHAMIDE [Concomitant]
     Active Substance: CYCLOPHOSPHAMIDE
     Indication: Bone marrow conditioning regimen
     Dosage: UNK
     Dates: start: 20210902
  3. FLUDARABINE [Concomitant]
     Active Substance: FLUDARABINE PHOSPHATE
     Indication: Bone marrow conditioning regimen
     Dosage: UNK
     Dates: start: 20210902
  4. LENALIDOMIDE [Concomitant]
     Active Substance: LENALIDOMIDE
  5. BENDAMUSTINE;RITUXIMAB [Concomitant]
  6. POLATUZUMAB VEDOTIN [Concomitant]
     Active Substance: POLATUZUMAB VEDOTIN

REACTIONS (7)
  - Cardio-respiratory arrest [Fatal]
  - Sepsis [Fatal]
  - Neurotoxicity [Recovered/Resolved with Sequelae]
  - Cytokine release syndrome [Recovered/Resolved]
  - Pancytopenia [Fatal]
  - Diffuse large B-cell lymphoma [Fatal]
  - Pleural effusion [Unknown]

NARRATIVE: CASE EVENT DATE: 20210913
